FAERS Safety Report 16623820 (Version 1)
Quarter: 2019Q3

REPORT INFORMATION
  Report Type: Spontaneous
  Country: US (occurrence: US)
  Receive Date: 20190610
  Receipt Date: 20190610
  Transmission Date: 20191004
  Serious: Yes (Life-Threatening, Hospitalization)
  Sender: FDA-Public Use
  Company Number: None

PATIENT
  Age: 76 Year
  Sex: Male

DRUGS (3)
  1. SUGAMMADEX [Suspect]
     Active Substance: SUGAMMADEX
     Indication: SURGERY
     Route: 042
     Dates: start: 20190607, end: 20190607
  2. SUGAMMADEX [Suspect]
     Active Substance: SUGAMMADEX
     Indication: CARDIOVASCULAR DISORDER
     Route: 042
     Dates: start: 20190607, end: 20190607
  3. SUGAMMADEX [Suspect]
     Active Substance: SUGAMMADEX
     Indication: NEUROMUSCULAR BLOCKADE REVERSAL
     Route: 042
     Dates: start: 20190607, end: 20190607

REACTIONS (3)
  - Respiratory depression [None]
  - Hypotension [None]
  - Anaphylactic reaction [None]

NARRATIVE: CASE EVENT DATE: 20190607
